FAERS Safety Report 6790764-4 (Version None)
Quarter: 2010Q2

REPORT INFORMATION
  Report Type: 
  Country: None (occurrence: None)
  Receive Date: 20100624
  Receipt Date: 20100610
  Transmission Date: 20101027
  Serious: Yes (Hospitalization)
  Sender: FDA-Public Use
  Company Number: US-ELI_LILLY_AND_COMPANY-US201006004710

PATIENT
  Sex: Male

DRUGS (1)
  1. ZYPREXA [Suspect]
     Dosage: 5 MG, 2/D

REACTIONS (3)
  - ASTHENIA [None]
  - INTESTINAL OBSTRUCTION [None]
  - INTESTINAL PERFORATION [None]
